FAERS Safety Report 21918141 (Version 2)
Quarter: 2023Q1

REPORT INFORMATION
  Report Type: Spontaneous
  Country: FR (occurrence: FR)
  Receive Date: 20230127
  Receipt Date: 20230130
  Transmission Date: 20230418
  Serious: Yes (Other)
  Sender: FDA-Public Use
  Company Number: FR-KYOWAKIRIN-2023AKK000907

PATIENT

DRUGS (1)
  1. EPOETIN ALFA [Suspect]
     Active Substance: ERYTHROPOIETIN
     Indication: Anaemia
     Dosage: UNK
     Route: 065

REACTIONS (20)
  - Cerebral thrombosis [Unknown]
  - Embolism [Unknown]
  - Haemorrhage [Unknown]
  - Hyperkalaemia [Unknown]
  - Pulmonary embolism [Unknown]
  - Pulmonary embolism [Unknown]
  - Jugular vein thrombosis [Unknown]
  - Infection [Unknown]
  - Muscular weakness [Unknown]
  - Dermatitis [Unknown]
  - Influenza like illness [Unknown]
  - Blood pressure increased [Unknown]
  - Asthenia [Unknown]
  - Diarrhoea [Unknown]
  - Rash pruritic [Unknown]
  - Bone pain [Unknown]
  - Injection site pain [Unknown]
  - Myalgia [Unknown]
  - Headache [Unknown]
  - Rash [Unknown]
